FAERS Safety Report 6813896-0 (Version None)
Quarter: 2010Q3

REPORT INFORMATION
  Report Type: 
  Country: None (occurrence: None)
  Receive Date: 20100702
  Receipt Date: 20100625
  Transmission Date: 20110219
  Serious: Yes (Disabling, Other)
  Sender: FDA-Public Use
  Company Number: CA-MERCK-1006USA04064

PATIENT
  Age: 84 Year
  Sex: Female

DRUGS (8)
  1. FOSAMAX [Suspect]
     Route: 048
  2. ALDACTONE [Concomitant]
     Route: 048
  3. APO FUROSEMIDE [Concomitant]
     Route: 065
  4. CALCIUM (UNSPECIFIED) AND VITAMIN D (UNSPECIFIED) [Concomitant]
     Route: 065
  5. CELEBREX [Concomitant]
     Route: 048
  6. PANTOPRAZOLE [Concomitant]
     Route: 048
  7. BISOPROLOL SANDOZ [Concomitant]
     Route: 048
  8. SUPEUDOL [Concomitant]
     Route: 048

REACTIONS (12)
  - BLINDNESS [None]
  - DIZZINESS [None]
  - EAR PAIN [None]
  - EYE HAEMORRHAGE [None]
  - EYE OEDEMA [None]
  - FACIAL PAIN [None]
  - OPTIC NERVE DISORDER [None]
  - THROMBOSIS [None]
  - TINNITUS [None]
  - VISION BLURRED [None]
  - VISUAL ACUITY REDUCED [None]
  - VOMITING [None]
